FAERS Safety Report 6419905-5 (Version None)
Quarter: 2009Q4

REPORT INFORMATION
  Report Type: 
  Country: None (occurrence: None)
  Receive Date: 20091029
  Receipt Date: 20091022
  Transmission Date: 20100525
  Serious: Yes (Hospitalization)
  Sender: FDA-Public Use
  Company Number: US-ASTRAZENECA-2009SE14496

PATIENT
  Age: 58 Year
  Sex: Female

DRUGS (4)
  1. PULMICORT FLEXHALER [Suspect]
     Route: 055
  2. PULMICORT FLEXHALER [Suspect]
     Route: 055
  3. PULMICORT FLEXHALER [Suspect]
     Route: 055
  4. PULMICORT FLEXHALER [Suspect]
     Route: 055

REACTIONS (1)
  - ROTATOR CUFF SYNDROME [None]
